FAERS Safety Report 10185343 (Version 1)
Quarter: 2014Q2

REPORT INFORMATION
  Report Type: Report from Study
  Country: US (occurrence: US)
  Receive Date: 20140521
  Receipt Date: 20140521
  Transmission Date: 20141212
  Serious: Yes (Other)
  Sender: FDA-Public Use
  Company Number: US-SA-2014SA060885

PATIENT
  Age: 63 Year
  Sex: Male

DRUGS (2)
  1. LANTUS SOLOSTAR [Suspect]
     Indication: DIABETES MELLITUS
     Route: 065
  2. SOLOSTAR [Suspect]

REACTIONS (5)
  - Blindness [Unknown]
  - Cardiac operation [Unknown]
  - Thrombosis [Unknown]
  - Cerebrovascular accident [Unknown]
  - Visual field defect [Unknown]
